FAERS Safety Report 9129701 (Version 2)
Quarter: 2013Q2

REPORT INFORMATION
  Report Type: Spontaneous
  Country: FR (occurrence: FR)
  Receive Date: 20130125
  Receipt Date: 20130517
  Transmission Date: 20140414
  Serious: Yes (Other)
  Sender: FDA-Public Use
  Company Number: FR-BRISTOL-MYERS SQUIBB COMPANY-17296435

PATIENT
  Age: 58 Year
  Sex: Female

DRUGS (7)
  1. ORENCIA FOR INJ 250 MG/VIAL [Suspect]
     Indication: RHEUMATOID ARTHRITIS
     Dates: start: 201202
  2. VOLTARENE [Concomitant]
  3. INEXIUM [Concomitant]
  4. ROPINIROLE [Concomitant]
  5. TRAMADOL [Concomitant]
  6. LIORESAL [Concomitant]
  7. OXYNORM [Concomitant]

REACTIONS (1)
  - Myopathy [Not Recovered/Not Resolved]
